FAERS Safety Report 25774579 (Version 1)
Quarter: 2025Q3

REPORT INFORMATION
  Report Type: Spontaneous
  Country: US (occurrence: US)
  Receive Date: 20250908
  Receipt Date: 20250908
  Transmission Date: 20251020
  Serious: No
  Sender: BRISTOL-MYERS SQUIBB COMPANY
  Company Number: US-BRISTOL-MYERS SQUIBB COMPANY-2025-123446

PATIENT
  Age: 3 Decade
  Sex: Female

DRUGS (3)
  1. COBENFY [Suspect]
     Active Substance: TROSPIUM CHLORIDE\XANOMELINE
     Indication: Schizoaffective disorder
     Dosage: DOSE: 50/20MG; STRENGTH: 50/20MG
  2. COBENFY [Suspect]
     Active Substance: TROSPIUM CHLORIDE\XANOMELINE
     Dosage: DOSE: 100/20MG; STRENGTH: 100/20MG
  3. Loxepin [Concomitant]
     Indication: Product used for unknown indication

REACTIONS (1)
  - Abdominal distension [Unknown]
